FAERS Safety Report 6975305-0 (Version None)
Quarter: 2010Q3

REPORT INFORMATION
  Report Type: 
  Country: None (occurrence: None)
  Receive Date: 20100910
  Receipt Date: 20090303
  Transmission Date: 20110219
  Serious: No
  Sender: FDA-Public Use
  Company Number: US-WYE-H08475009

PATIENT
  Age: 47 Year
  Sex: Female
  Weight: 59.02 kg

DRUGS (3)
  1. ADVIL PM [Suspect]
     Indication: INSOMNIA
     Dosage: 2 CAPLETS DAILY
     Route: 048
     Dates: start: 20090201, end: 20090201
  2. ADVIL PM [Suspect]
     Indication: MYALGIA
  3. LITHIUM CARBONATE [Concomitant]

REACTIONS (4)
  - HEADACHE [None]
  - INFLUENZA [None]
  - SOMNOLENCE [None]
  - VOMITING [None]
